FAERS Safety Report 10035405 (Version 2)
Quarter: 2014Q1

REPORT INFORMATION
  Report Type: Spontaneous
  Country: US (occurrence: US)
  Receive Date: 20140325
  Receipt Date: 20140328
  Transmission Date: 20141002
  Serious: No
  Sender: FDA-Public Use
  Company Number: US-PFIZER INC-2014082318

PATIENT
  Sex: Female

DRUGS (1)
  1. ESTRING [Suspect]
     Dosage: UNK
     Dates: start: 20140319

REACTIONS (3)
  - Muscle spasms [Unknown]
  - Hypersensitivity [Unknown]
  - Drug intolerance [Unknown]
